FAERS Safety Report 13333387 (Version 1)
Quarter: 2017Q1

REPORT INFORMATION
  Report Type: Spontaneous
  Country: US (occurrence: US)
  Receive Date: 20170313
  Receipt Date: 20170313
  Transmission Date: 20170428
  Serious: Yes (Death, Hospitalization)
  Sender: FDA-Public Use
  Company Number: US-BAYER-2017-042019

PATIENT
  Age: 28 Year
  Sex: Female
  Weight: 81.8 kg

DRUGS (2)
  1. CLOZAPINE. [Interacting]
     Active Substance: CLOZAPINE
  2. CIPROFLOXACIN. [Suspect]
     Active Substance: CIPROFLOXACIN

REACTIONS (4)
  - Potentiating drug interaction [None]
  - Toxicity to various agents [Fatal]
  - Circulatory collapse [Fatal]
  - Labelled drug-drug interaction medication error [None]
